FAERS Safety Report 7518678-2 (Version None)
Quarter: 2011Q2

REPORT INFORMATION
  Report Type: 
  Country: None (occurrence: None)
  Receive Date: 20110602
  Receipt Date: 20110519
  Transmission Date: 20111010
  Serious: Yes (Hospitalization)
  Sender: FDA-Public Use
  Company Number: PHHY2011FR43589

PATIENT
  Sex: Male

DRUGS (4)
  1. ATARAX [Concomitant]
     Indication: ANXIETY
     Dosage: 100 MG, QD
  2. CLOZAPINE [Suspect]
     Indication: SCHIZOPHRENIA
     Dosage: 600 MG
  3. CLONAZEPAM [Concomitant]
     Indication: EPILEPSY
  4. MINIRIN [Concomitant]
     Indication: DIABETES INSIPIDUS

REACTIONS (2)
  - LUNG DISORDER [None]
  - PNEUMOTHORAX [None]
